FAERS Safety Report 16155867 (Version 1)
Quarter: 2019Q2

REPORT INFORMATION
  Report Type: Spontaneous
  Country: ZA (occurrence: ZA)
  Receive Date: 20190404
  Receipt Date: 20190404
  Transmission Date: 20190711
  Serious: Yes (Other)
  Sender: FDA-Public Use
  Company Number: ZA-SA-2019SA087152

PATIENT
  Age: 40 Year
  Sex: Female

DRUGS (4)
  1. ARAVA [Suspect]
     Active Substance: LEFLUNOMIDE
     Dosage: 20 MG, QD
     Dates: start: 2008, end: 2012
  2. SALAZOPYRIN [Concomitant]
     Active Substance: SULFASALAZINE
  3. CHLOROQUINE. [Suspect]
     Active Substance: CHLOROQUINE
     Dosage: 200 MG, QD
     Dates: start: 2001, end: 2002
  4. METHOTREXATE. [Concomitant]
     Active Substance: METHOTREXATE
     Dosage: 30 MG, QW
     Dates: start: 2001, end: 2008

REACTIONS (5)
  - Depression [Unknown]
  - Maculopathy [Unknown]
  - Peptic ulcer [Unknown]
  - Drug intolerance [Unknown]
  - Migraine [Unknown]

NARRATIVE: CASE EVENT DATE: 2002
